FAERS Safety Report 5403860-0 (Version None)
Quarter: 2007Q3

REPORT INFORMATION
  Report Type: 
  Country: None (occurrence: None)
  Receive Date: 20070802
  Receipt Date: 20070730
  Transmission Date: 20080115
  Serious: Yes (Congenital Anomaly, Other)
  Sender: FDA-Public Use
  Company Number: US-BRISTOL-MYERS SQUIBB COMPANY-13861497

PATIENT
  Sex: Male
  Weight: 56 kg

DRUGS (1)
  1. STADOL [Suspect]
     Route: 064
     Dates: start: 19960101

REACTIONS (10)
  - ASTHMA [None]
  - COUGH [None]
  - DYSPNOEA EXERTIONAL [None]
  - FOOT DEFORMITY [None]
  - JUVENILE ARTHRITIS [None]
  - OBESITY [None]
  - PAIN [None]
  - PREMATURE BABY [None]
  - SCOLIOSIS [None]
  - VOMITING [None]
